FAERS Safety Report 9802745 (Version 1)
Quarter: 2014Q1

REPORT INFORMATION
  Report Type: Report from Study
  Country: US (occurrence: US)
  Receive Date: 20140108
  Receipt Date: 20140108
  Transmission Date: 20141002
  Serious: Yes (Death)
  Sender: FDA-Public Use
  Company Number: US-ROCHE-1330616

PATIENT
  Sex: Male

DRUGS (3)
  1. AVASTIN [Suspect]
     Indication: RENAL CANCER
     Route: 042
  2. TORISEL [Concomitant]
     Route: 042
  3. DIPHENHYDRAMINE HCL [Concomitant]
     Route: 042

REACTIONS (1)
  - Death [Fatal]
